FAERS Safety Report 7339048-6 (Version None)
Quarter: 2011Q1

REPORT INFORMATION
  Report Type: 
  Country: None (occurrence: None)
  Receive Date: 20110308
  Receipt Date: 20110223
  Transmission Date: 20110831
  Serious: Yes (Hospitalization)
  Sender: FDA-Public Use
  Company Number: FR-ELI_LILLY_AND_COMPANY-FR201102007154

PATIENT
  Sex: Female

DRUGS (10)
  1. PANOS [Concomitant]
  2. PARIET [Concomitant]
     Dosage: 20 MG, DAILY (1/D)
     Route: 048
  3. CODOLIPRANE [Concomitant]
     Indication: FIBROMYALGIA
     Dosage: UNK, 3/D
     Route: 048
  4. CYMBALTA [Suspect]
     Indication: DEPRESSION
     Dosage: 60 MG, DAILY (1/D)
     Route: 048
     Dates: start: 20080101
  5. PROFENID [Concomitant]
     Indication: FIBROMYALGIA
     Dosage: 100 MG, 3/D
     Route: 048
     Dates: end: 20080221
  6. TRAMADOL [Concomitant]
     Indication: FIBROMYALGIA
     Dosage: 200 MG, DAILY (1/D)
     Route: 048
  7. LEVOTHYROXINE SODIUM [Concomitant]
  8. RIVOTRIL [Concomitant]
     Dosage: 13 D/F, DAILY (1/D)
     Route: 048
  9. TRANSIPEG /00754501/ [Concomitant]
  10. DEPAKENE [Concomitant]
     Dosage: 500 MG, 2/D
     Route: 048
     Dates: start: 20050101

REACTIONS (2)
  - HEPATOCELLULAR INJURY [None]
  - CHOLESTASIS [None]
